FAERS Safety Report 19962482 (Version 1)
Quarter: 2021Q4

REPORT INFORMATION
  Report Type: Spontaneous
  Country: CO (occurrence: CO)
  Receive Date: 20211018
  Receipt Date: 20211018
  Transmission Date: 20220303
  Serious: Yes (Other)
  Sender: FDA-Public Use
  Company Number: CO-SA-SAC20211012001264

PATIENT

DRUGS (1)
  1. PRALUENT [Suspect]
     Active Substance: ALIROCUMAB
     Indication: Acute myocardial infarction
     Dosage: 150 MG
     Route: 058
     Dates: start: 20200520, end: 20200901

REACTIONS (1)
  - Erectile dysfunction [Unknown]
